FAERS Safety Report 9012399 (Version 3)
Quarter: 2013Q3

REPORT INFORMATION
  Report Type: Spontaneous
  Country: CA (occurrence: CA)
  Receive Date: 20130114
  Receipt Date: 20130813
  Transmission Date: 20140515
  Serious: Yes (Hospitalization, Other)
  Sender: FDA-Public Use
  Company Number: CA-GILEAD-2013-0067712

PATIENT
  Age: 50 Year
  Sex: Female

DRUGS (1)
  1. COMPLERA [Suspect]
     Indication: HIV INFECTION
     Dosage: 1 DF, QD
     Route: 048
     Dates: start: 20121107

REACTIONS (3)
  - Psychotic disorder [Recovering/Resolving]
  - Major depression [Unknown]
  - Nightmare [Unknown]
